FAERS Safety Report 22204973 (Version 1)
Quarter: 2023Q2

REPORT INFORMATION
  Report Type: Spontaneous
  Country: DE (occurrence: DE)
  Receive Date: 20230413
  Receipt Date: 20230413
  Transmission Date: 20230722
  Serious: Yes (Hospitalization, Other)
  Sender: FDA-Public Use
  Company Number: None

PATIENT
  Age: 30 Year
  Sex: Male

DRUGS (1)
  1. CLARITHROMYCIN [Suspect]
     Active Substance: CLARITHROMYCIN
     Indication: Pharyngitis
     Dates: start: 20230314, end: 20230318

REACTIONS (7)
  - Psychomotor retardation [Not Recovered/Not Resolved]
  - Feeling of despair [Not Recovered/Not Resolved]
  - Insomnia [Not Recovered/Not Resolved]
  - Delirium [Not Recovered/Not Resolved]
  - Disorientation [Not Recovered/Not Resolved]
  - Condition aggravated [Not Recovered/Not Resolved]
  - Suicidal ideation [Not Recovered/Not Resolved]

NARRATIVE: CASE EVENT DATE: 20230316
